FAERS Safety Report 21774121 (Version 2)
Quarter: 2023Q1

REPORT INFORMATION
  Report Type: Spontaneous
  Country: CH (occurrence: CH)
  Receive Date: 20221223
  Receipt Date: 20230106
  Transmission Date: 20230418
  Serious: Yes (Other)
  Sender: FDA-Public Use
  Company Number: CH-SM-2022-21009

PATIENT
  Age: 88 Year
  Sex: Male

DRUGS (13)
  1. REMDESIVIR [Suspect]
     Active Substance: REMDESIVIR
     Indication: COVID-19 pneumonia
     Dosage: VEKLURY? (REMDESIVIR) 200 MG INTRAVEN?SE GABE AM 26.10.2022 ; IN TOTAL
     Route: 042
     Dates: start: 20221026, end: 20221026
  2. METOPROLOL SUCCINATE [Concomitant]
     Active Substance: METOPROLOL SUCCINATE
     Dosage: METOPROLOL MEPHA? (METOPROLOL) 100 MG 1-0-0
     Route: 048
  3. LOSARTAN POTASSIUM [Concomitant]
     Active Substance: LOSARTAN POTASSIUM
     Dosage: LOSARTAN MEPHA? (LOSARTAN) 100 MG 1-0-0
     Route: 048
  4. ROSUVASTATIN CALCIUM [Concomitant]
     Active Substance: ROSUVASTATIN CALCIUM
     Dosage: ROSUVASTATIN MEPHA? (ROSUVASTATIN) 20 MG 1-0-0
     Route: 048
  5. GINKO [GINKGO BILOBA LEAF] [Concomitant]
     Dosage: SYMFONA? (GINKGOBL?TTER-TROCKENEXTRAKT, EINGESTELLT) 1-0-0
     Route: 048
  6. XARELTO [Concomitant]
     Active Substance: RIVAROXABAN
     Dosage: XARELTO? (RIVAROXABAN) 15 MG 1-0-0, AB DEM 27.10.2022 GESTEIGERT AUF 1-0-1-0
     Route: 048
     Dates: end: 20221026
  7. XARELTO [Concomitant]
     Active Substance: RIVAROXABAN
     Dosage: XARELTO? (RIVAROXABAN) 15 MG 1-0-0, AB DEM 27.10.2022 GESTEIGERT AUF 1-0-1-0
     Route: 048
     Dates: start: 20221027
  8. TORSEMIDE [Concomitant]
     Active Substance: TORSEMIDE
     Dosage: TOREM? (TORASEMID) 10 MG 2-0-0
     Route: 048
  9. METFORMIN HYDROCHLORIDE [Concomitant]
     Active Substance: METFORMIN HYDROCHLORIDE
     Dosage: METFIN? (METFORMIN) 500 MG 1-0-0
     Route: 048
  10. CHOLECALCIFEROL [Concomitant]
     Active Substance: CHOLECALCIFEROL
     Dosage: VITAMIN D3 STREULI? (VITAMIN D3) 1 X T?GLICH 0,2 ML
     Route: 048
  11. FOLIC ACID [Concomitant]
     Active Substance: FOLIC ACID
     Dosage: ACIDUM FOLICUM STREULI? (FOLS?URE) 5 MG 1-0-0
     Route: 048
  12. DEXAMETHASONE [Concomitant]
     Active Substance: DEXAMETHASONE
  13. OXYGEN [Concomitant]
     Active Substance: OXYGEN

REACTIONS (1)
  - Drug eruption [Recovered/Resolved]

NARRATIVE: CASE EVENT DATE: 20221026
